FAERS Safety Report 9360429 (Version 2)
Quarter: 2013Q2

REPORT INFORMATION
  Report Type: Spontaneous
  Country: JP (occurrence: JP)
  Receive Date: 20130621
  Receipt Date: 20130629
  Transmission Date: 20140414
  Serious: No
  Sender: FDA-Public Use
  Company Number: JP-009507513-1306JPN007577

PATIENT
  Age: 60 Year
  Sex: Male

DRUGS (5)
  1. TRYPTANOL [Suspect]
     Dosage: 30 MG, TID
     Route: 048
     Dates: start: 20130513, end: 20130514
  2. NESINA [Concomitant]
     Dosage: 25 MG UNK
     Route: 048
  3. LYRICA [Concomitant]
     Dosage: 300 MG UNK
     Route: 048
  4. LOXONIN [Concomitant]
     Dosage: 180 MG UNK
     Route: 048
  5. OXYCONTIN [Concomitant]
     Dosage: 80 MG UNK
     Route: 048
     Dates: start: 20130422

REACTIONS (1)
  - Serotonin syndrome [Recovering/Resolving]
